FAERS Safety Report 10219010 (Version 1)
Quarter: 2014Q2

REPORT INFORMATION
  Report Type: Spontaneous
  Country: ZA (occurrence: ZA)
  Receive Date: 20140605
  Receipt Date: 20140605
  Transmission Date: 20141212
  Serious: Yes (Other)
  Sender: FDA-Public Use
  Company Number: 2014SP001703

PATIENT
  Age: 66 Year
  Sex: Male

DRUGS (3)
  1. OMNARIS NASAL SPRAY [Suspect]
     Indication: RHINITIS ALLERGIC
     Route: 045
     Dates: end: 20140521
  2. OMNARIS NASAL SPRAY [Suspect]
     Indication: RHINITIS ALLERGIC
     Route: 045
     Dates: start: 20140401
  3. LEVOCETIRIZINE [Concomitant]
     Dates: start: 20131030

REACTIONS (4)
  - Dyspnoea [Unknown]
  - Insomnia [Unknown]
  - Nasal congestion [Unknown]
  - Sinus disorder [Unknown]
